FAERS Safety Report 5618383-3 (Version None)
Quarter: 2008Q1

REPORT INFORMATION
  Report Type: 
  Country: None (occurrence: None)
  Receive Date: 20080207
  Receipt Date: 20080201
  Transmission Date: 20080703
  Serious: Yes (Other)
  Sender: FDA-Public Use
  Company Number: HQWYE875708MAR05

PATIENT
  Sex: Female

DRUGS (3)
  1. PREMPRO [Suspect]
     Dosage: UNKNOWN
     Route: 048
     Dates: start: 19940101, end: 19980101
  2. PROVERA [Suspect]
     Dosage: UNKNOWN
     Dates: start: 19890101, end: 19940101
  3. ESTRACE [Suspect]
     Dosage: UNKNOWN
     Dates: start: 19890101, end: 19940101

REACTIONS (1)
  - BREAST CANCER RECURRENT [None]
